FAERS Safety Report 23710347 (Version 1)
Quarter: 2024Q2

REPORT INFORMATION
  Report Type: Spontaneous
  Country: ES (occurrence: ES)
  Receive Date: 20240405
  Receipt Date: 20240405
  Transmission Date: 20240716
  Serious: Yes (Hospitalization, Congenital Anomaly)
  Sender: FDA-Public Use
  Company Number: ES-AJANTA-2024AJA00050

PATIENT
  Age: 0 Year
  Sex: Male
  Weight: 1.75 kg

DRUGS (1)
  1. TOFACITINIB [Suspect]
     Active Substance: TOFACITINIB
     Indication: Foetal exposure during pregnancy
     Route: 064

REACTIONS (3)
  - Polydactyly [Unknown]
  - Premature baby [Unknown]
  - Foetal exposure during pregnancy [Unknown]

NARRATIVE: CASE EVENT DATE: 20220501
